FAERS Safety Report 4519940-8 (Version None)
Quarter: 2004Q4

REPORT INFORMATION
  Report Type: 
  Country: None (occurrence: None)
  Receive Date: 20041207
  Receipt Date: 20041130
  Transmission Date: 20050328
  Serious: Yes (Life-Threatening)
  Sender: FDA-Public Use
  Company Number: AU-ROCHE-387780

PATIENT
  Sex: Female

DRUGS (3)
  1. VALIUM [Suspect]
     Indication: DRUG USE FOR UNKNOWN INDICATION
     Route: 065
  2. MARCAINE [Suspect]
     Route: 042
  3. HYDRALAZINE HCL [Suspect]
     Route: 042

REACTIONS (4)
  - CYANOSIS [None]
  - DIZZINESS [None]
  - HYPOTENSION [None]
  - PALLOR [None]
